FAERS Safety Report 16787534 (Version 1)
Quarter: 2019Q3

REPORT INFORMATION
  Report Type: Spontaneous
  Country: GB (occurrence: GB)
  Receive Date: 20190909
  Receipt Date: 20190909
  Transmission Date: 20191005
  Serious: Yes (Life-Threatening, Hospitalization, Disabling, Other)
  Sender: FDA-Public Use
  Company Number: GB-BAUSCH-BL-2019-024636

PATIENT
  Age: 27 Year
  Sex: Female
  Weight: 63.5 kg

DRUGS (34)
  1. CODEINE [Suspect]
     Active Substance: CODEINE
     Indication: SEROTONIN SYNDROME
     Route: 048
     Dates: start: 2008, end: 2008
  2. TRAMADOL. [Suspect]
     Active Substance: TRAMADOL
     Indication: BACK PAIN
     Dosage: 4 (UNITS UNSPECIFIED)
     Route: 048
     Dates: start: 20080722
  3. CODEINE [Suspect]
     Active Substance: CODEINE
     Indication: ANALGESIC THERAPY
     Route: 048
     Dates: start: 2002, end: 2002
  4. PAROXETINE. [Suspect]
     Active Substance: PAROXETINE
     Indication: POST-TRAUMATIC STRESS DISORDER
     Route: 048
     Dates: start: 19990801
  5. SEROXAT [Suspect]
     Active Substance: PAROXETINE HYDROCHLORIDE
     Route: 048
     Dates: start: 201105, end: 20110706
  6. DOMPERIDONE [Suspect]
     Active Substance: DOMPERIDONE
     Indication: PRODUCT USED FOR UNKNOWN INDICATION
     Route: 065
  7. PROCYCLIDINE [Suspect]
     Active Substance: PROCYCLIDINE
     Indication: OCULOGYRIC CRISIS
     Route: 048
     Dates: start: 1995, end: 1996
  8. PROCYCLIDINE [Suspect]
     Active Substance: PROCYCLIDINE
     Route: 048
     Dates: start: 20110503, end: 20110510
  9. PAROXETINE. [Suspect]
     Active Substance: PAROXETINE
     Route: 048
     Dates: start: 19990801, end: 20110706
  10. DIAZEPAM. [Suspect]
     Active Substance: DIAZEPAM
     Indication: MUSCLE SPASMS
     Route: 065
     Dates: start: 20110725
  11. SEROXAT [Suspect]
     Active Substance: PAROXETINE HYDROCHLORIDE
     Indication: DEPRESSION
     Route: 048
     Dates: start: 19990801, end: 201105
  12. OMEPRAZOLE. [Suspect]
     Active Substance: OMEPRAZOLE
     Indication: DYSPEPSIA
     Route: 065
     Dates: start: 20110525
  13. AMITRIPTYLINE [Suspect]
     Active Substance: AMITRIPTYLINE
     Indication: NEURALGIA
     Route: 065
  14. TRAMADOL. [Suspect]
     Active Substance: TRAMADOL
     Route: 048
     Dates: start: 20081201, end: 20101210
  15. PROCYCLIDINE [Suspect]
     Active Substance: PROCYCLIDINE
     Indication: EXTRAPYRAMIDAL DISORDER
     Route: 065
     Dates: start: 1995, end: 1996
  16. PROCYCLIDINE [Suspect]
     Active Substance: PROCYCLIDINE
     Route: 048
     Dates: start: 20110503, end: 20110510
  17. AMITRIPTYLINE [Suspect]
     Active Substance: AMITRIPTYLINE
     Indication: MUSCLE SPASMS
     Route: 065
     Dates: start: 20110810
  18. CODEINE [Suspect]
     Active Substance: CODEINE
     Dosage: 1 (UNITS UNSPECIFIED) IN 24 HOURS
     Route: 048
     Dates: start: 20110615, end: 20110723
  19. MIRTAZAPINE. [Suspect]
     Active Substance: MIRTAZAPINE
     Indication: DEPRESSION
     Route: 048
     Dates: start: 20100923, end: 20101108
  20. TRAMADOL. [Suspect]
     Active Substance: TRAMADOL
     Dosage: 4 (UNITS UNSPECIFIED)
     Route: 048
     Dates: start: 20080722
  21. PAROXETINE. [Suspect]
     Active Substance: PAROXETINE
     Indication: DEPRESSION
     Route: 048
     Dates: start: 19990801, end: 20110706
  22. LORAZEPAM. [Suspect]
     Active Substance: LORAZEPAM
     Indication: SEDATION
     Route: 048
     Dates: start: 20110224, end: 20110410
  23. LORAZEPAM. [Suspect]
     Active Substance: LORAZEPAM
     Route: 048
     Dates: start: 20110523, end: 20110627
  24. SEROXAT [Suspect]
     Active Substance: PAROXETINE HYDROCHLORIDE
     Route: 048
     Dates: start: 19990801, end: 201105
  25. TRAMADOL. [Suspect]
     Active Substance: TRAMADOL
     Indication: ANALGESIC THERAPY
     Dosage: 4 (UNITS UNSPECIFIED)
     Route: 048
     Dates: start: 20081201, end: 20101210
  26. TRAMADOL. [Suspect]
     Active Substance: TRAMADOL
     Indication: NECK PAIN
     Dosage: 4 (UNITS UNSPECIFIED)
     Route: 048
     Dates: start: 20080722
  27. PAROXETINE. [Suspect]
     Active Substance: PAROXETINE
     Route: 048
     Dates: start: 19990801, end: 20110706
  28. DIAZEPAM. [Concomitant]
     Active Substance: DIAZEPAM
     Indication: PRODUCT USED FOR UNKNOWN INDICATION
  29. AMITRIPTYLINE [Suspect]
     Active Substance: AMITRIPTYLINE
     Indication: SEROTONIN SYNDROME
     Route: 065
  30. QUETIAPINE. [Suspect]
     Active Substance: QUETIAPINE
     Indication: PSYCHOTIC DISORDER
     Route: 065
     Dates: end: 20110506
  31. QUETIAPINE. [Suspect]
     Active Substance: QUETIAPINE
     Route: 048
     Dates: start: 20110224, end: 20110506
  32. TRAMADOL. [Suspect]
     Active Substance: TRAMADOL
     Route: 048
     Dates: start: 20081201, end: 20101210
  33. CLONAZEPAM. [Suspect]
     Active Substance: CLONAZEPAM
     Indication: SEDATION
     Route: 048
     Dates: start: 20110224, end: 20110410
  34. DIAZEPAM. [Suspect]
     Active Substance: DIAZEPAM
     Indication: SEROTONIN SYNDROME
     Route: 065
     Dates: start: 20110725

REACTIONS (31)
  - Muscle rigidity [Unknown]
  - Paralysis [Unknown]
  - Serotonin syndrome [Not Recovered/Not Resolved]
  - Neuroleptic malignant syndrome [Unknown]
  - Seizure [Unknown]
  - Disorientation [Not Recovered/Not Resolved]
  - Toxicity to various agents [Unknown]
  - Dystonia [Unknown]
  - Paraesthesia [Unknown]
  - Mydriasis [Unknown]
  - Malaise [Unknown]
  - Drug interaction [Unknown]
  - Premature labour [Unknown]
  - Suicidal ideation [Not Recovered/Not Resolved]
  - Skin discolouration [Not Recovered/Not Resolved]
  - Feeling of body temperature change [Unknown]
  - Fatigue [Unknown]
  - Muscle disorder [Unknown]
  - Aphasia [Not Recovered/Not Resolved]
  - Speech disorder [Unknown]
  - Nightmare [Unknown]
  - Contusion [Unknown]
  - Musculoskeletal stiffness [Unknown]
  - Pallor [Unknown]
  - Muscle spasms [Unknown]
  - Drug withdrawal syndrome [Unknown]
  - Muscle spasms [Not Recovered/Not Resolved]
  - Hypoaesthesia oral [Unknown]
  - Swollen tongue [Unknown]
  - Maternal exposure during pregnancy [Unknown]
  - Arthralgia [Unknown]

NARRATIVE: CASE EVENT DATE: 2008
